FAERS Safety Report 15221142 (Version 12)
Quarter: 2025Q3

REPORT INFORMATION
  Report Type: Spontaneous
  Country: EU (occurrence: EU)
  Receive Date: 20180731
  Receipt Date: 20250902
  Transmission Date: 20251020
  Serious: Yes (Life-Threatening, Hospitalization, Other)
  Sender: AUROBINDO
  Company Number: None

PATIENT
  Age: 48 Year
  Sex: Female
  Weight: 77 kg

DRUGS (38)
  1. ORLISTAT [Interacting]
     Active Substance: ORLISTAT
     Indication: Weight decreased
     Dosage: 50 MILLIGRAM, TWO TIMES A DAY
     Route: 048
     Dates: start: 201708, end: 201804
  2. ORLISTAT [Interacting]
     Active Substance: ORLISTAT
     Indication: Overweight
     Route: 065
  3. METFORMIN HYDROCHLORIDE [Suspect]
     Active Substance: METFORMIN HYDROCHLORIDE
     Indication: Weight decreased
     Dosage: 400 MILLIGRAM, ONCE A DAY
     Route: 048
     Dates: start: 201708, end: 201804
  4. METFORMIN HYDROCHLORIDE [Suspect]
     Active Substance: METFORMIN HYDROCHLORIDE
     Indication: Overweight
     Route: 065
  5. BUPROPION [Interacting]
     Active Substance: BUPROPION
     Indication: Weight decreased
     Dosage: 100 MILLIGRAM, TWO TIMES A DAY
     Route: 048
     Dates: start: 201708, end: 201804
  6. BUPROPION [Interacting]
     Active Substance: BUPROPION
     Indication: Overweight
     Dosage: 100 MILLIGRAM, TWO TIMES A DAY
     Route: 048
     Dates: start: 201708, end: 201804
  7. BUPROPION [Interacting]
     Active Substance: BUPROPION
     Route: 065
  8. RHAMNUS PURSHIANA BARK EXTRACT [Interacting]
     Active Substance: RHAMNUS PURSHIANA BARK EXTRACT
     Indication: Weight decreased
     Route: 048
     Dates: start: 201708, end: 201804
  9. RHAMNUS PURSHIANA BARK EXTRACT [Interacting]
     Active Substance: RHAMNUS PURSHIANA BARK EXTRACT
     Route: 048
     Dates: start: 201708
  10. CENTELLA ASIATICA\HERBALS [Interacting]
     Active Substance: CENTELLA ASIATICA\HERBALS
     Indication: Weight decreased
     Dosage: 200 MILLIGRAM, TWO TIMES A DAY
     Route: 048
     Dates: start: 201708, end: 201804
  11. CHLORDIAZEPOXIDE [Interacting]
     Active Substance: CHLORDIAZEPOXIDE
     Indication: Weight decreased
     Dosage: 10 MILLIGRAM, TWO TIMES A DAY
     Route: 048
     Dates: start: 201708, end: 201804
  12. CHLORDIAZEPOXIDE [Interacting]
     Active Substance: CHLORDIAZEPOXIDE
     Indication: Overweight
     Dosage: 10 MILLIGRAM, ONCE A DAY
     Route: 048
     Dates: start: 201708, end: 201804
  13. CHLORDIAZEPOXIDE [Interacting]
     Active Substance: CHLORDIAZEPOXIDE
     Route: 065
  14. CHROMIUM PICOLINATE [Interacting]
     Active Substance: CHROMIUM PICOLINATE
     Indication: Weight decreased
     Dosage: 200 MICROGRAM, TWO TIMES A DAY
     Route: 048
     Dates: start: 201708
  15. CHROMIUM PICOLINATE [Interacting]
     Active Substance: CHROMIUM PICOLINATE
     Indication: Overweight
     Route: 065
  16. ETHINYL ESTRADIOL [Interacting]
     Active Substance: ETHINYL ESTRADIOL
     Indication: Contraception
     Route: 048
  17. HERBALS [Suspect]
     Active Substance: HERBALS
     Indication: Weight decreased
     Dosage: 40 MILLIGRAM, TWO TIMES A DAY
     Route: 065
  18. FUROSEMIDE [Interacting]
     Active Substance: FUROSEMIDE
     Indication: Weight decreased
     Dosage: 40 MILLIGRAM, TWO TIMES A DAY
     Route: 048
     Dates: start: 201708, end: 201804
  19. FUROSEMIDE [Interacting]
     Active Substance: FUROSEMIDE
     Indication: Overweight
     Dosage: 80 MILLIGRAM, ONCE A DAY
     Route: 065
  20. FUROSEMIDE [Interacting]
     Active Substance: FUROSEMIDE
     Route: 065
  21. GESTODENE [Interacting]
     Active Substance: GESTODENE
     Indication: Contraception
     Route: 048
  22. GESTODENE [Interacting]
     Active Substance: GESTODENE
     Route: 048
  23. METFORMIN [Interacting]
     Active Substance: METFORMIN HYDROCHLORIDE
     Indication: Weight decreased
     Dosage: 400 MILLIGRAM, ONCE A DAY
     Route: 048
     Dates: start: 201708, end: 201804
  24. METFORMIN [Interacting]
     Active Substance: METFORMIN HYDROCHLORIDE
     Indication: Weight decreased
     Dosage: 200 MILLIGRAM, TWO TIMES A DAY
     Route: 065
  25. ETHINYL ESTRADIOL\GESTODENE [Interacting]
     Active Substance: ETHINYL ESTRADIOL\GESTODENE
     Indication: Oral contraception
     Dosage: 1 DOSAGE FORM, ONCE A DAY (FIVE MONTHS PREVIOUSLY)
     Route: 048
     Dates: start: 201711
  26. PHENOLPHTHALEIN [Interacting]
     Active Substance: PHENOLPHTHALEIN
     Indication: Weight decreased
     Dosage: 80 MILLIGRAM, TWO TIMES A DAY
     Route: 048
     Dates: start: 201708
  27. PHENOLPHTHALEIN [Interacting]
     Active Substance: PHENOLPHTHALEIN
     Dosage: 180 MILLIGRAM, ONCE A DAY
     Route: 048
     Dates: start: 201708, end: 201804
  28. PHENOLPHTHALEIN [Interacting]
     Active Substance: PHENOLPHTHALEIN
     Dosage: 160 MILLIGRAM, ONCE A DAY
     Route: 048
     Dates: start: 201708, end: 201804
  29. PHENOLPHTHALEIN [Interacting]
     Active Substance: PHENOLPHTHALEIN
     Route: 065
  30. SENNA LEAF [Suspect]
     Active Substance: SENNA LEAF
     Indication: Weight decreased
     Dosage: 20 MILLIGRAM, TWO TIMES A DAY
     Route: 065
  31. SENNOSIDES A AND B [Suspect]
     Active Substance: SENNOSIDES A AND B
     Indication: Weight control
     Dosage: 20 MILLIGRAM, TWO TIMES A DAY
     Route: 065
  32. TOPIRAMATE [Interacting]
     Active Substance: TOPIRAMATE
     Indication: Weight decreased
     Dosage: 10 MILLIGRAM, TWO TIMES A DAY
     Route: 048
     Dates: start: 201708, end: 201804
  33. TOPIRAMATE [Interacting]
     Active Substance: TOPIRAMATE
     Indication: Overweight
     Dosage: 20 MILLIGRAM, TWO TIMES A DAY
     Route: 048
     Dates: start: 201708, end: 201804
  34. TOPIRAMATE [Interacting]
     Active Substance: TOPIRAMATE
     Route: 065
  35. ETHINYL ESTRADIOL\GESTODENE [Suspect]
     Active Substance: ETHINYL ESTRADIOL\GESTODENE
     Indication: Contraception
     Route: 048
  36. XENICAL [Suspect]
     Active Substance: ORLISTAT
     Indication: Weight decreased
     Dosage: 100 MILLIGRAM, ONCE A DAY
     Route: 048
  37. FLECAINIDE [Concomitant]
     Active Substance: FLECAINIDE
     Indication: Ventricular extrasystoles
     Route: 048
     Dates: start: 20160120
  38. FLECAINIDE [Concomitant]
     Active Substance: FLECAINIDE
     Indication: Ventricular arrhythmia
     Dosage: 100 MILLIGRAM, ONCE A DAY
     Route: 048
     Dates: start: 201605

REACTIONS (17)
  - Cerebral venous thrombosis [Recovered/Resolved]
  - Thalamic infarction [Recovered/Resolved]
  - Fatigue [Recovering/Resolving]
  - Bradyphrenia [Recovered/Resolved]
  - Headache [Recovered/Resolved]
  - Psychomotor retardation [Recovering/Resolving]
  - Speech disorder [Recovered/Resolved]
  - Disorientation [Recovered/Resolved]
  - Slow response to stimuli [Recovering/Resolving]
  - Intentional product misuse [Unknown]
  - Drug interaction [Unknown]
  - Product use in unapproved indication [Unknown]
  - Off label use [Unknown]
  - Tension headache [Recovered/Resolved]
  - Nausea [Recovered/Resolved]
  - Vision blurred [Recovered/Resolved]
  - Disturbance in attention [Recovered/Resolved]

NARRATIVE: CASE EVENT DATE: 20170801
